FAERS Safety Report 13496298 (Version 1)
Quarter: 2017Q2

REPORT INFORMATION
  Report Type: Spontaneous
  Country: US (occurrence: US)
  Receive Date: 20170428
  Receipt Date: 20170428
  Transmission Date: 20170830
  Serious: Yes (Other)
  Sender: FDA-Public Use
  Company Number: US-AMGEN-USASP2017060774

PATIENT
  Age: 76 Year
  Sex: Female

DRUGS (1)
  1. PROLIA [Suspect]
     Active Substance: DENOSUMAB
     Indication: OSTEOPOROSIS POSTMENOPAUSAL
     Dosage: UNK
     Route: 065

REACTIONS (10)
  - Fall [Unknown]
  - Pain in extremity [Unknown]
  - Pain [Unknown]
  - Pelvic fracture [Recovered/Resolved]
  - Blood cholesterol increased [Unknown]
  - Ankle fracture [Recovered/Resolved]
  - Back pain [Not Recovered/Not Resolved]
  - Spinal fusion surgery [Unknown]
  - Groin pain [Not Recovered/Not Resolved]
  - Arthralgia [Not Recovered/Not Resolved]

NARRATIVE: CASE EVENT DATE: 20161220
